FAERS Safety Report 4975893-X (Version None)
Quarter: 2006Q2

REPORT INFORMATION
  Report Type: 
  Country: None (occurrence: None)
  Receive Date: 20060411
  Receipt Date: 20060329
  Transmission Date: 20061013
  Serious: Yes (Other)
  Sender: FDA-Public Use
  Company Number: 2006044221

PATIENT
  Age: 40 Year
  Sex: Female
  Weight: 65.7716 kg

DRUGS (1)
  1. ZMAX [Suspect]
     Indication: SINUSITIS
     Dosage: (2 GRAM, 1 IN 1 TOTAL)
     Dates: start: 20060329, end: 20060329

REACTIONS (8)
  - ASTHENIA [None]
  - CHILLS [None]
  - DIARRHOEA [None]
  - DIFFICULTY IN WALKING [None]
  - DYSPNOEA [None]
  - FEELING HOT [None]
  - NAUSEA [None]
  - SYNCOPE [None]
